FAERS Safety Report 8585103-2 (Version None)
Quarter: 2012Q3

REPORT INFORMATION
  Report Type: 
  Country: None (occurrence: None)
  Receive Date: 20120810
  Receipt Date: 20120730
  Transmission Date: 20120928
  Serious: Yes (Hospitalization)
  Sender: FDA-Public Use
  Company Number: ZA-NOVOPROD-357180

PATIENT
  Sex: Female

DRUGS (2)
  1. LEVEMIR [Suspect]
     Indication: DIABETES MELLITUS
     Dosage: 8 U, QD
     Route: 064
     Dates: start: 20110401
  2. NOVORAPID FLEXPEN [Suspect]
     Indication: DIABETES MELLITUS
     Dosage: 18 U, QD
     Route: 064
     Dates: start: 20110322

REACTIONS (3)
  - FOETAL EXPOSURE DURING PREGNANCY [None]
  - LARGE FOR DATES BABY [None]
  - JAUNDICE NEONATAL [None]
